FAERS Safety Report 5667475-1 (Version None)
Quarter: 2008Q1

REPORT INFORMATION
  Report Type: 
  Country: None (occurrence: None)
  Receive Date: 20080315
  Receipt Date: 20080123
  Transmission Date: 20080703
  Serious: No
  Sender: FDA-Public Use
  Company Number: US-ABBOTT-08P-163-0434940-00

PATIENT
  Sex: Female
  Weight: 96.6 kg

DRUGS (11)
  1. HUMIRA [Suspect]
     Indication: CROHN'S DISEASE
     Route: 058
     Dates: start: 20070901, end: 20070901
  2. HUMIRA [Suspect]
     Route: 058
  3. HUMIRA [Suspect]
     Route: 058
  4. VALIUM [Concomitant]
     Indication: ANXIETY
     Route: 048
  5. GAPAPEN [Concomitant]
     Indication: OSTEOARTHRITIS
     Route: 048
  6. LANSOPRAZOLE [Concomitant]
     Indication: GASTROOESOPHAGEAL REFLUX DISEASE
     Route: 048
  7. SIMVASTATIN [Concomitant]
     Indication: BLOOD CHOLESTEROL INCREASED
     Route: 048
  8. AZATHIOPRINE [Concomitant]
     Indication: CROHN'S DISEASE
     Route: 048
  9. METOCLOPRAMIDE [Concomitant]
     Indication: GASTROOESOPHAGEAL REFLUX DISEASE
     Route: 048
  10. DICYCLOVERINE [Concomitant]
     Indication: CROHN'S DISEASE
     Route: 048
  11. PHENERGAN HCL [Concomitant]
     Indication: CROHN'S DISEASE
     Route: 048

REACTIONS (1)
  - RASH [None]
